FAERS Safety Report 16459154 (Version 1)
Quarter: 2019Q2

REPORT INFORMATION
  Report Type: Spontaneous
  Country: CN (occurrence: CN)
  Receive Date: 20190620
  Receipt Date: 20190620
  Transmission Date: 20190711
  Serious: Yes (Other)
  Sender: FDA-Public Use
  Company Number: PHHY2019CN135111

PATIENT
  Age: 81 Year
  Sex: Male

DRUGS (1)
  1. BRINZOLAMIDE [Suspect]
     Active Substance: BRINZOLAMIDE
     Indication: ANGLE CLOSURE GLAUCOMA
     Dosage: 1 DF, BID
     Route: 047
     Dates: start: 20161030, end: 20161031

REACTIONS (3)
  - Vitreous opacities [Unknown]
  - Vitreous detachment [Unknown]
  - Off label use [Unknown]

NARRATIVE: CASE EVENT DATE: 20161030
